FAERS Safety Report 8483886-3 (Version None)
Quarter: 2012Q2

REPORT INFORMATION
  Report Type: 
  Country: None (occurrence: None)
  Receive Date: 20120627
  Receipt Date: 20120627
  Transmission Date: 20120825
  Serious: Yes (Hospitalization)
  Sender: FDA-Public Use
  Company Number: None

PATIENT
  Sex: Male
  Weight: 81.8 kg

DRUGS (9)
  1. BIOTIN [Concomitant]
  2. LITHIUM CARBONATE [Concomitant]
  3. CLONAZEPAM [Concomitant]
  4. LIFE PAK TAB MENS [Concomitant]
  5. FISH OIL [Concomitant]
  6. LEVOTHYROXINE SODIUM [Concomitant]
  7. COD LIVER [Concomitant]
  8. CALCIUM/MAG/ZINC [Concomitant]
  9. XELODA [Suspect]
     Indication: OESOPHAGEAL CARCINOMA
     Dosage: BID X2 WEEKS PO
     Route: 048
     Dates: start: 20120401

REACTIONS (1)
  - PYREXIA [None]
